FAERS Safety Report 6077099-2 (Version None)
Quarter: 2009Q1

REPORT INFORMATION
  Report Type: 
  Country: None (occurrence: None)
  Receive Date: 20090213
  Receipt Date: 20090204
  Transmission Date: 20090719
  Serious: Yes (Other)
  Sender: FDA-Public Use
  Company Number: PHEH2009US01403

PATIENT
  Age: 48 Year
  Sex: Female

DRUGS (8)
  1. RECLAST [Suspect]
     Dosage: ONCE/SINGLE USE
     Dates: start: 20080123, end: 20080123
  2. ZOLOFT [Concomitant]
     Dosage: UNK, UNK
  3. CALCIUM [Concomitant]
     Dosage: UNK, UNK
  4. FISH OIL [Concomitant]
     Dosage: UNK, UNK
  5. HORMONES AND RELATED AGENTS [Concomitant]
     Dosage: UNK, UNK
     Route: 062
  6. ACIPHEX [Concomitant]
     Dosage: UNK, UNK
  7. LIPITOR [Concomitant]
     Dosage: UNK, UNK
  8. CENTRUM SILVER [Concomitant]
     Dosage: UNK, UNK

REACTIONS (4)
  - ENDODONTIC PROCEDURE [None]
  - IMPAIRED HEALING [None]
  - TOOTH ABSCESS [None]
  - TOOTH DISORDER [None]
